FAERS Safety Report 16540395 (Version 1)
Quarter: 2019Q3

REPORT INFORMATION
  Report Type: Spontaneous
  Country: IT (occurrence: IT)
  Receive Date: 20190708
  Receipt Date: 20190708
  Transmission Date: 20191004
  Serious: Yes (Other)
  Sender: FDA-Public Use
  Company Number: IT-SA-2019SA180377

PATIENT
  Age: 72 Year
  Sex: Male

DRUGS (8)
  1. AFLIBERCEPT [Suspect]
     Active Substance: AFLIBERCEPT
     Indication: COLON CANCER
     Dosage: 220 MG, QCY
     Route: 042
     Dates: start: 20190225, end: 20190225
  2. FLUOROURACIL. [Suspect]
     Active Substance: FLUOROURACIL
     Dosage: 3600 MG, QCY
     Route: 042
     Dates: start: 20190610, end: 20190610
  3. DOXIFLURIDINE [Suspect]
     Active Substance: DOXIFLURIDINE
     Indication: COLON CANCER
     Dosage: 600 MG, QCY
     Route: 040
     Dates: start: 20190225, end: 20190225
  4. AFLIBERCEPT [Suspect]
     Active Substance: AFLIBERCEPT
     Dosage: 220 MG, QCY
     Route: 042
     Dates: start: 20190610, end: 20190610
  5. FLUOROURACIL. [Suspect]
     Active Substance: FLUOROURACIL
     Indication: COLON CANCER
     Dosage: 3600 MG, QCY
     Route: 042
     Dates: start: 20190225, end: 20190225
  6. IRINOTECAN [Suspect]
     Active Substance: IRINOTECAN
     Indication: COLON CANCER
     Dosage: 250 MG, QCY
     Route: 042
     Dates: start: 20190225, end: 20190225
  7. IRINOTECAN [Suspect]
     Active Substance: IRINOTECAN
     Dosage: 250 MG, QCY
     Route: 042
     Dates: start: 20190610, end: 20190610
  8. DOXIFLURIDINE [Suspect]
     Active Substance: DOXIFLURIDINE
     Dosage: 600 MG, QCY
     Route: 040
     Dates: start: 20190610, end: 20190610

REACTIONS (1)
  - Gamma-glutamyltransferase increased [Recovered/Resolved]

NARRATIVE: CASE EVENT DATE: 20190521
